FAERS Safety Report 5636747-9 (Version None)
Quarter: 2008Q1

REPORT INFORMATION
  Report Type: 
  Country: None (occurrence: None)
  Receive Date: 20080225
  Receipt Date: 20080215
  Transmission Date: 20080703
  Serious: No
  Sender: FDA-Public Use
  Company Number: US-BRACCO-000280

PATIENT
  Age: 85 Year
  Sex: Female

DRUGS (2)
  1. ISOVUE-128 [Suspect]
     Indication: ARTERIOGRAM CORONARY
     Route: 013
     Dates: start: 20080101, end: 20080101
  2. ISOVUE-128 [Suspect]
     Indication: ARTERIOGRAM RENAL
     Route: 013
     Dates: start: 20080101, end: 20080101

REACTIONS (1)
  - RENAL FAILURE ACUTE [None]
